FAERS Safety Report 5877128-2 (Version None)
Quarter: 2008Q3

REPORT INFORMATION
  Report Type: 
  Country: None (occurrence: None)
  Receive Date: 20080910
  Receipt Date: 20080829
  Transmission Date: 20090109
  Serious: Yes (Hospitalization)
  Sender: FDA-Public Use
  Company Number: SE-PFIZER INC-2008073225

PATIENT
  Sex: Female

DRUGS (7)
  1. LYRICA [Suspect]
     Dosage: DAILY DOSE:50MG
     Route: 048
     Dates: start: 20071119, end: 20080714
  2. BRICANYL [Concomitant]
  3. SYMBICORT [Concomitant]
  4. ALL OTHER THERAPEUTIC PRODUCTS [Concomitant]
  5. CITALOPRAM HYDROBROMIDE [Concomitant]
     Dates: start: 20071101
  6. ISOPTO-MAXIDEX [Concomitant]
  7. CALCICHEW-D3 [Concomitant]

REACTIONS (1)
  - FALL [None]
